FAERS Safety Report 18007376 (Version 1)
Quarter: 2020Q3

REPORT INFORMATION
  Report Type: Spontaneous
  Country: US (occurrence: US)
  Receive Date: 20200710
  Receipt Date: 20200710
  Transmission Date: 20201103
  Serious: Yes (Hospitalization)
  Sender: FDA-Public Use
  Company Number: None

PATIENT
  Age: 75 Year
  Sex: Male
  Weight: 91.7 kg

DRUGS (3)
  1. KYMRIAH [Suspect]
     Active Substance: TISAGENLECLEUCEL
     Indication: DIFFUSE LARGE B-CELL LYMPHOMA REFRACTORY
     Dosage: ?          OTHER FREQUENCY:1 DOSE;?
     Route: 042
     Dates: start: 20200512, end: 20200512
  2. KYMRIAH [Suspect]
     Active Substance: TISAGENLECLEUCEL
     Indication: AUTOLOGOUS HAEMATOPOIETIC STEM CELL TRANSPLANT
     Dosage: ?          OTHER FREQUENCY:1 DOSE;?
     Route: 042
     Dates: start: 20200512, end: 20200512
  3. KYMRIAH [Suspect]
     Active Substance: TISAGENLECLEUCEL
     Indication: DIFFUSE LARGE B-CELL LYMPHOMA RECURRENT
     Dosage: ?          OTHER FREQUENCY:1 DOSE;?
     Route: 042
     Dates: start: 20200512, end: 20200512

REACTIONS (3)
  - Cerebral infarction [None]
  - Immune effector cell-associated neurotoxicity syndrome [None]
  - Cytokine release syndrome [None]

NARRATIVE: CASE EVENT DATE: 20200513
